FAERS Safety Report 17534886 (Version 2)
Quarter: 2020Q1

REPORT INFORMATION
  Report Type: Spontaneous
  Country: US (occurrence: US)
  Receive Date: 20200312
  Receipt Date: 20200323
  Transmission Date: 20200409
  Serious: No
  Sender: FDA-Public Use
  Company Number: US-SA-2020SA062777

PATIENT
  Age: 68 Year
  Sex: Male

DRUGS (1)
  1. PRALUENT [Suspect]
     Active Substance: ALIROCUMAB
     Indication: BLOOD CHOLESTEROL INCREASED
     Dosage: 75 MG, QOW
     Dates: start: 20200201, end: 20200216

REACTIONS (4)
  - Salivary hypersecretion [Unknown]
  - Weight decreased [Unknown]
  - Dysphagia [Unknown]
  - Choking sensation [Unknown]

NARRATIVE: CASE EVENT DATE: 2020
